FAERS Safety Report 25145631 (Version 6)
Quarter: 2025Q4

REPORT INFORMATION
  Report Type: Spontaneous
  Country: US (occurrence: US)
  Receive Date: 20250401
  Receipt Date: 20251223
  Transmission Date: 20260118
  Serious: No
  Sender: PFIZER
  Company Number: US-PFIZER INC-202500063131

PATIENT
  Age: 11 Year
  Sex: Female
  Weight: 34.2 kg

DRUGS (3)
  1. GENOTROPIN [Suspect]
     Active Substance: SOMATROPIN
     Indication: Hypopituitarism
     Dosage: 1.4 MG, 6 DAYS/WEEK
     Route: 058
  2. GENOTROPIN [Suspect]
     Active Substance: SOMATROPIN
     Indication: Growth hormone deficiency
     Dosage: 1.2 MG, 6 DAYS PER WEEK
  3. NGENLA [Suspect]
     Active Substance: SOMATROGON-GHLA
     Dosage: 23.5 MG SQ ONE TIME PER WEEK
     Route: 058

REACTIONS (2)
  - Device leakage [Unknown]
  - Device breakage [Unknown]

NARRATIVE: CASE EVENT DATE: 20250320
